FAERS Safety Report 4378460-4 (Version None)
Quarter: 2004Q2

REPORT INFORMATION
  Report Type: 
  Country: None (occurrence: None)
  Receive Date: 20040609
  Receipt Date: 20040526
  Transmission Date: 20050107
  Serious: Yes (Hospitalization)
  Sender: FDA-Public Use
  Company Number: S04-USA-03006-01

PATIENT
  Age: 75 Year
  Sex: Male

DRUGS (4)
  1. NAMENDA [Suspect]
     Indication: DEMENTIA ALZHEIMER'S TYPE
     Dosage: 20 MG QD PO
     Route: 048
     Dates: start: 20040101, end: 20040401
  2. NAMENDA [Suspect]
     Indication: DEMENTIA ALZHEIMER'S TYPE
     Dates: start: 20040301, end: 20040101
  3. SINEMET [Concomitant]
  4. OTHER MEDICATIONS (NOS) [Concomitant]

REACTIONS (5)
  - CARDIAC ARREST [None]
  - GRAND MAL CONVULSION [None]
  - HYPERSOMNIA [None]
  - RENAL FAILURE [None]
  - URINARY TRACT OBSTRUCTION [None]
